FAERS Safety Report 7038664-9 (Version None)
Quarter: 2010Q4

REPORT INFORMATION
  Report Type: 
  Country: None (occurrence: None)
  Receive Date: 20101011
  Receipt Date: 20101007
  Transmission Date: 20110411
  Serious: No
  Sender: FDA-Public Use
  Company Number: US-PFIZER INC-2010127618

PATIENT
  Sex: Female

DRUGS (1)
  1. SOLU-CORTEF [Suspect]
     Indication: ADRENOCORTICAL INSUFFICIENCY ACUTE
     Dosage: UNK, AS NEEDED

REACTIONS (1)
  - INFLUENZA [None]
